FAERS Safety Report 7992864-X (Version None)
Quarter: 2011Q4

REPORT INFORMATION
  Report Type: 
  Country: None (occurrence: None)
  Receive Date: 20111219
  Receipt Date: 20110408
  Transmission Date: 20120403
  Serious: No
  Sender: FDA-Public Use
  Company Number: US-ASTRAZENECA-2010SE28891

PATIENT
  Age: 52 Year
  Sex: Female

DRUGS (4)
  1. NEXIUM [Concomitant]
  2. NUMBER OF MEDICATIONS [Concomitant]
  3. ZETIA [Concomitant]
  4. CRESTOR [Suspect]
     Route: 048

REACTIONS (2)
  - BLOOD CHOLESTEROL INCREASED [None]
  - DRUG DOSE OMISSION [None]
